FAERS Safety Report 8314283 (Version 2)
Quarter: 2013Q1

REPORT INFORMATION
  Report Type: Spontaneous
  Country: JP (occurrence: JP)
  Receive Date: 20111228
  Receipt Date: 20130213
  Transmission Date: 20140127
  Serious: Yes (Hospitalization)
  Sender: FDA-Public Use
  Company Number: JP-GLAXOSMITHKLINE-B0768036A

PATIENT
  Age: 41 Year
  Sex: Female

DRUGS (6)
  1. NIFELANTERN CR [Concomitant]
     Indication: HYPERTENSION
     Dosage: 20MG TWICE PER DAY
     Route: 048
     Dates: start: 20100804
  2. LAMICTAL [Suspect]
     Indication: BIPOLAR II DISORDER
     Dosage: 25MG ALTERNATE DAYS
     Route: 048
     Dates: start: 20111017, end: 20111028
  3. LAMICTAL [Suspect]
     Indication: BIPOLAR II DISORDER
     Dosage: 25MG PER DAY
     Route: 048
     Dates: start: 20111029, end: 20111119
  4. DEPAKENE [Concomitant]
     Dosage: 200MG PER DAY
     Route: 048
     Dates: start: 20100811
  5. TOPINA [Concomitant]
     Dosage: 50MG TWICE PER DAY
     Route: 048
     Dates: start: 20110228
  6. SENIRAN [Concomitant]
     Dosage: 2MG TWICE PER DAY
     Route: 048
     Dates: start: 20110603

REACTIONS (3)
  - Eczema [Recovered/Resolved]
  - Rash [Recovered/Resolved]
  - Erythema multiforme [Unknown]
